FAERS Safety Report 12056055 (Version 4)
Quarter: 2020Q1

REPORT INFORMATION
  Report Type: Spontaneous
  Country: US (occurrence: US)
  Receive Date: 20160209
  Receipt Date: 20200206
  Transmission Date: 20200409
  Serious: No
  Sender: FDA-Public Use
  Company Number: US-ABBVIE-15P-163-1469998-00

PATIENT

DRUGS (4)
  1. HUMIRA [Suspect]
     Active Substance: ADALIMUMAB
     Indication: PSORIASIS
     Route: 058
  2. BENADRYL [Suspect]
     Active Substance: DIPHENHYDRAMINE HYDROCHLORIDE
     Indication: PRODUCT USED FOR UNKNOWN INDICATION
     Route: 065
  3. ROSACEA CHILLOUT [Concomitant]
     Indication: PRODUCT USED FOR UNKNOWN INDICATION
  4. CLARITIN [Concomitant]
     Active Substance: LORATADINE
     Indication: PRODUCT USED FOR UNKNOWN INDICATION

REACTIONS (13)
  - Hypersensitivity [Unknown]
  - Psoriasis [Recovering/Resolving]
  - Somnolence [Unknown]
  - Sensitivity to weather change [Unknown]
  - Panic reaction [Unknown]
  - Hyperhidrosis [Unknown]
  - Hyperaesthesia [Unknown]
  - Chapped lips [Unknown]
  - Dry skin [Unknown]
  - Urticaria [Recovered/Resolved]
  - Fear [Unknown]
  - Rosacea [Unknown]
  - Temperature intolerance [Recovering/Resolving]
